FAERS Safety Report 5894680-1 (Version None)
Quarter: 2008Q3

REPORT INFORMATION
  Report Type: 
  Country: None (occurrence: None)
  Receive Date: 20080922
  Receipt Date: 20080911
  Transmission Date: 20090109
  Serious: Yes (Hospitalization)
  Sender: FDA-Public Use
  Company Number: 20080221

PATIENT
  Age: 25 Year
  Sex: Female

DRUGS (3)
  1. VENOFER [Suspect]
     Indication: IRON DEFICIENCY ANAEMIA
     Dosage: 300 MG ONCE INTRAVENOUS DRIP
     Route: 041
     Dates: start: 20080709
  2. TRICK-BORNE ENCEPHALITIS VACCINE [Suspect]
     Indication: PROPHYLAXIS
     Dosage: 1 DOSAGE
     Dates: start: 20080709
  3. CONCOMITANT MEDICATIONS NOT SPECIFIED [Concomitant]

REACTIONS (7)
  - CONCUSSION [None]
  - CONFUSIONAL STATE [None]
  - DIZZINESS [None]
  - FALL [None]
  - HYPOTENSION [None]
  - PAIN [None]
  - SYNCOPE [None]
